FAERS Safety Report 4286945-4 (Version None)
Quarter: 2004Q1

REPORT INFORMATION
  Report Type: 
  Country: None (occurrence: None)
  Receive Date: 20040206
  Receipt Date: 20040128
  Transmission Date: 20041129
  Serious: Yes (Other)
  Sender: FDA-Public Use
  Company Number: WAES 0401GBR00255

PATIENT
  Age: 85 Year
  Sex: Female
  Weight: 75 kg

DRUGS (4)
  1. FOSAMAX [Suspect]
     Indication: OSTEOPOROSIS
     Route: 048
     Dates: start: 20010904, end: 20011110
  2. BECLOMETHASONE DIPROPIONATE [Concomitant]
     Route: 055
     Dates: start: 19990327
  3. CALCIUM CARBONATE AND CHOLECALCIFEROL [Concomitant]
     Dates: start: 20010904
  4. LANSOPRAZOLE [Concomitant]
     Dates: end: 20011025

REACTIONS (2)
  - ASTHMA [None]
  - SWELLING FACE [None]
